FAERS Safety Report 11115655 (Version 1)
Quarter: 2015Q2

REPORT INFORMATION
  Report Type: Spontaneous
  Country: US (occurrence: None)
  Receive Date: 20150514
  Receipt Date: 20150514
  Transmission Date: 20150821
  Serious: Yes (Life-Threatening, Hospitalization)
  Sender: FDA-Public Use
  Company Number: None

PATIENT
  Age: 68 Year
  Sex: Male
  Weight: 80.1 kg

DRUGS (9)
  1. CROFAB [Suspect]
     Active Substance: CROTALIDAE POLYVALENT IMMUNE FAB (OVINE)
     Indication: SNAKE BITE
     Dosage: 4 VIALS/ 250 ML X 3 BAGS
     Route: 042
     Dates: start: 20150512, end: 20150512
  2. GEMFIBROZIL. [Concomitant]
     Active Substance: GEMFIBROZIL
  3. OXYCODONE [Concomitant]
     Active Substance: OXYCODONE
  4. ASPIRIN. [Concomitant]
     Active Substance: ASPIRIN
  5. OMEGA-3/DHA/EPA/FISH OIL [Concomitant]
  6. AMITRIPTYLINE [Concomitant]
     Active Substance: AMITRIPTYLINE
  7. FLUTICASONE [Concomitant]
     Active Substance: FLUTICASONE\FLUTICASONE PROPIONATE
  8. LISINOPRIL. [Concomitant]
     Active Substance: LISINOPRIL
  9. OXYCODONE-ACETAMINOPHEN [Concomitant]
     Active Substance: ACETAMINOPHEN\OXYCODONE HYDROCHLORIDE

REACTIONS (1)
  - Anaphylactic reaction [None]

NARRATIVE: CASE EVENT DATE: 20150512
